FAERS Safety Report 18295040 (Version 5)
Quarter: 2021Q2

REPORT INFORMATION
  Report Type: Spontaneous
  Country: US (occurrence: US)
  Receive Date: 20200922
  Receipt Date: 20210429
  Transmission Date: 20210717
  Serious: Yes (Hospitalization)
  Sender: FDA-Public Use
  Company Number: US-GLOBAL BLOOD THERAPEUTICS INC-US-GBT-20-02157

PATIENT
  Age: 46 Year
  Sex: Male

DRUGS (9)
  1. OXBRYTA [Suspect]
     Active Substance: VOXELOTOR
     Route: 048
     Dates: start: 20200725, end: 20200727
  2. LISINOPRIL. [Concomitant]
     Active Substance: LISINOPRIL
     Indication: PRODUCT USED FOR UNKNOWN INDICATION
     Dosage: NOT PROVIDED
     Dates: start: 202007, end: 2020
  3. OXBRYTA [Suspect]
     Active Substance: VOXELOTOR
     Route: 048
     Dates: start: 20200803, end: 202008
  4. OXBRYTA [Suspect]
     Active Substance: VOXELOTOR
     Route: 048
     Dates: start: 202008
  5. OXBRYTA [Suspect]
     Active Substance: VOXELOTOR
     Route: 048
     Dates: start: 2021
  6. ADAKVEO [Concomitant]
     Active Substance: CRIZANLIZUMAB-TMCA
     Indication: PRODUCT USED FOR UNKNOWN INDICATION
     Dosage: NOT PROVIDED
  7. OXBRYTA [Suspect]
     Active Substance: VOXELOTOR
     Indication: THALASSAEMIA SICKLE CELL
     Route: 048
     Dates: start: 20200709, end: 20200725
  8. OXBRYTA [Suspect]
     Active Substance: VOXELOTOR
     Route: 048
     Dates: start: 202008, end: 202008
  9. HYDROXYUREA. [Concomitant]
     Active Substance: HYDROXYUREA
     Indication: SICKLE CELL DISEASE
     Dosage: NOT PROVIDED

REACTIONS (10)
  - Sickle cell anaemia with crisis [Recovered/Resolved]
  - Abdominal pain upper [Unknown]
  - Diarrhoea [Recovered/Resolved]
  - Lip swelling [Recovered/Resolved]
  - Intentional product misuse [Unknown]
  - Swelling face [Recovered/Resolved]
  - Off label use [Unknown]
  - Sickle cell anaemia with crisis [Recovered/Resolved]
  - Sickle cell anaemia with crisis [Recovered/Resolved]
  - Sickle cell anaemia with crisis [Recovered/Resolved]

NARRATIVE: CASE EVENT DATE: 202007
